FAERS Safety Report 4900020-4 (Version None)
Quarter: 2006Q1

REPORT INFORMATION
  Report Type: 
  Country: None (occurrence: None)
  Receive Date: 20060201
  Receipt Date: 20060117
  Transmission Date: 20060701
  Serious: Yes (Other)
  Sender: FDA-Public Use
  Company Number: US200601002907

PATIENT
  Age: 55 Year
  Sex: Male

DRUGS (2)
  1. CIALIS [Suspect]
     Indication: ERECTILE DYSFUNCTION
     Dosage: 10 MG, 2/W; 5 MG
     Dates: start: 20050501
  2. METOPROLOL (METOPROLOL) [Concomitant]

REACTIONS (6)
  - ASTHENOPIA [None]
  - NERVE INJURY [None]
  - VISION BLURRED [None]
  - VISUAL ACUITY REDUCED [None]
  - VISUAL DISTURBANCE [None]
  - WRONG TECHNIQUE IN DRUG USAGE PROCESS [None]
